FAERS Safety Report 4355058-5 (Version None)
Quarter: 2004Q2

REPORT INFORMATION
  Report Type: 
  Country: None (occurrence: None)
  Receive Date: 20040504
  Receipt Date: 20040420
  Transmission Date: 20050107
  Serious: Yes (Death)
  Sender: FDA-Public Use
  Company Number: 2004S1000081

PATIENT
  Age: 65 Year
  Sex: Male
  Weight: 75 kg

DRUGS (5)
  1. CUBICIN [Suspect]
     Indication: STAPHYLOCOCCAL SEPSIS
     Dosage: 4 MG/KG; QD; IV
     Route: 042
     Dates: start: 20040330, end: 20040402
  2. AZACTAM [Concomitant]
  3. RIFAMPIN [Concomitant]
  4. DIFLUCAN [Concomitant]
  5. NEUPOGEN [Concomitant]

REACTIONS (1)
  - SUDDEN DEATH [None]
